FAERS Safety Report 8772560 (Version 1)
Quarter: 2012Q4

REPORT INFORMATION
  Report Type: Report from Study
  Country: US (occurrence: US)
  Receive Date: 20120905
  Receipt Date: 20120905
  Transmission Date: 20130627
  Serious: Yes (Hospitalization)
  Sender: FDA-Public Use
  Company Number: US-ROCHE-1111152

PATIENT
  Age: 54 Year
  Sex: Male
  Weight: 63.26 kg

DRUGS (11)
  1. AVASTIN [Suspect]
     Indication: NON-SMALL CELL LUNG CANCER
     Route: 042
     Dates: start: 20091210, end: 20100304
  2. AVASTIN [Suspect]
     Route: 042
     Dates: start: 20120325
  3. PACLITAXEL [Suspect]
     Indication: NON-SMALL CELL LUNG CANCER
     Route: 042
     Dates: start: 20091210, end: 20100304
  4. CARBOPLATIN [Suspect]
     Indication: NON-SMALL CELL LUNG CANCER
     Route: 042
     Dates: start: 20091210, end: 20100304
  5. MS CONTIN [Concomitant]
  6. ZOFRAN [Concomitant]
     Route: 065
     Dates: start: 20100121
  7. AMBIEN [Concomitant]
     Route: 065
     Dates: start: 20100304
  8. K-DUR [Concomitant]
  9. COMPAZINE [Concomitant]
     Route: 065
     Dates: start: 20091203
  10. GENTAMYCIN [Concomitant]
  11. VITAMIN [Concomitant]

REACTIONS (1)
  - Pancreatitis [Recovered/Resolved]
